FAERS Safety Report 7708686-0 (Version None)
Quarter: 2011Q3

REPORT INFORMATION
  Report Type: 
  Country: None (occurrence: None)
  Receive Date: 20110825
  Receipt Date: 20110818
  Transmission Date: 20111222
  Serious: Yes (Hospitalization)
  Sender: FDA-Public Use
  Company Number: FR-SANOFI-AVENTIS-2011SA052731

PATIENT
  Age: 82 Year
  Sex: Female

DRUGS (9)
  1. LEVOTHYROXINE SODIUM [Concomitant]
     Dosage: 75 MG EVERY 2 DAYS AND 50 MG THE OTHER DAYS
     Route: 048
  2. ACETAMINOPHEN [Concomitant]
     Route: 048
     Dates: start: 20110607
  3. POTASSIUM CHLORIDE [Concomitant]
     Route: 048
     Dates: start: 20110609
  4. PRAVASTATIN [Concomitant]
     Route: 048
  5. NEBIVOLOL HCL [Concomitant]
     Route: 048
  6. LOVENOX [Suspect]
     Route: 058
     Dates: start: 20110607, end: 20110614
  7. FUROSEMIDE [Concomitant]
     Route: 048
     Dates: end: 20110612
  8. PLAVIX [Interacting]
     Route: 048
  9. ALDACTONE [Concomitant]
     Route: 048
     Dates: start: 20110610

REACTIONS (3)
  - ANAEMIA [None]
  - DRUG INTERACTION [None]
  - HAEMATOMA [None]
